FAERS Safety Report 13066131 (Version 2)
Quarter: 2017Q4

REPORT INFORMATION
  Report Type: Report from Study
  Country: KR (occurrence: KR)
  Receive Date: 20161227
  Receipt Date: 20171026
  Transmission Date: 20180320
  Serious: Yes (Hospitalization)
  Sender: FDA-Public Use
  Company Number: KR-DSJP-DSJ-2016-143153

PATIENT

DRUGS (9)
  1. LASIX [Concomitant]
     Active Substance: FUROSEMIDE
     Indication: HYPERTENSION
     Dosage: 1.5 DF, BID
     Route: 048
     Dates: start: 20161202, end: 20161218
  2. ZYLORIC [Concomitant]
     Active Substance: ALLOPURINOL
     Indication: PLASMA CELL MYELOMA
     Dosage: 1 DF, QD
     Route: 048
     Dates: start: 20161202, end: 20161218
  3. ASPIRIN BAYER [Concomitant]
     Active Substance: ASPIRIN
     Indication: CEREBRAL INFARCTION
     Dosage: 300 MG, QD
     Route: 048
     Dates: start: 20161202, end: 20161205
  4. EDOXABAN [Suspect]
     Active Substance: EDOXABAN TOSYLATE
     Indication: EMBOLISM
  5. URSA [Concomitant]
     Indication: HEPATIC CIRRHOSIS
     Dosage: 200 MG, BID
     Route: 048
     Dates: start: 20161203, end: 20161218
  6. EDOXABAN [Suspect]
     Active Substance: EDOXABAN TOSYLATE
     Indication: CEREBROVASCULAR ACCIDENT PROPHYLAXIS
     Dosage: 30MG/DAY
     Route: 048
     Dates: start: 20161207, end: 20161218
  7. LIPITOR [Concomitant]
     Active Substance: ATORVASTATIN CALCIUM
     Indication: HYPERLIPIDAEMIA
     Dosage: 40 MG, QD
     Route: 048
     Dates: start: 20161202, end: 20161218
  8. GLIATILIN [Concomitant]
     Active Substance: CHOLINE ALFOSCERATE
     Indication: CEREBRAL INFARCTION
     Dosage: 1 DF, TID
     Route: 048
     Dates: start: 20161202, end: 20161218
  9. MUCOSTA [Concomitant]
     Active Substance: REBAMIPIDE
     Indication: GASTRITIS PROPHYLAXIS
     Dosage: 100 MG, TID
     Route: 048
     Dates: start: 20161202, end: 20161218

REACTIONS (1)
  - Cerebrovascular accident [Not Recovered/Not Resolved]

NARRATIVE: CASE EVENT DATE: 20161218
